FAERS Safety Report 17760329 (Version 1)
Quarter: 2020Q2

REPORT INFORMATION
  Report Type: Spontaneous
  Country: DE (occurrence: DE)
  Receive Date: 20200508
  Receipt Date: 20200508
  Transmission Date: 20200714
  Serious: Yes (Other)
  Sender: FDA-Public Use
  Company Number: DE-BAYER-2020-071129

PATIENT
  Age: 60 Year
  Sex: Female
  Weight: 60 kg

DRUGS (1)
  1. GADOVIST [Suspect]
     Active Substance: GADOBUTROL
     Indication: MAGNETIC RESONANCE IMAGING
     Dosage: APPLICATION IN 10 MRI EXAMINATIONS

REACTIONS (14)
  - Restlessness [Unknown]
  - Bone pain [Unknown]
  - White blood cell count decreased [Unknown]
  - Contrast media toxicity [Unknown]
  - Paraesthesia [Unknown]
  - Sleep disorder [Unknown]
  - Hypersensitivity [Unknown]
  - Gadolinium deposition disease [Unknown]
  - Nausea [Unknown]
  - Myalgia [Unknown]
  - Hyperacusis [Unknown]
  - Tinnitus [Unknown]
  - Pain [Unknown]
  - Transaminases increased [Unknown]

NARRATIVE: CASE EVENT DATE: 2018
